FAERS Safety Report 25981204 (Version 1)
Quarter: 2025Q4

REPORT INFORMATION
  Report Type: Spontaneous
  Country: US (occurrence: None)
  Receive Date: 20251030
  Receipt Date: 20251030
  Transmission Date: 20260117
  Serious: Yes (Hospitalization)
  Sender: FDA-CTU
  Company Number: None

PATIENT
  Sex: Female
  Weight: 58.5 kg

DRUGS (3)
  1. SILDENAFIL CITRATE [Suspect]
     Active Substance: SILDENAFIL CITRATE
     Indication: Pulmonary arterial hypertension
     Dosage: FREQUENCY : 3 TIMES A DAY;?
     Route: 048
     Dates: start: 20250627
  2. WINREVAIR [Suspect]
     Active Substance: SOTATERCEPT-CSRK
  3. TORSEMIDE [Suspect]
     Active Substance: TORSEMIDE

REACTIONS (3)
  - Gastric haemorrhage [None]
  - Cardiac failure [None]
  - Therapy cessation [None]
